FAERS Safety Report 14857078 (Version 1)
Quarter: 2018Q2

REPORT INFORMATION
  Report Type: Spontaneous
  Country: US (occurrence: US)
  Receive Date: 20180507
  Receipt Date: 20180507
  Transmission Date: 20180711
  Serious: Yes (Hospitalization)
  Sender: FDA-Public Use
  Company Number: US-BIOGEN-2018BI00569936

PATIENT
  Sex: Female

DRUGS (2)
  1. TYSABRI [Suspect]
     Active Substance: NATALIZUMAB
     Indication: MULTIPLE SCLEROSIS
     Route: 065
     Dates: start: 20150623
  2. TYSABRI [Suspect]
     Active Substance: NATALIZUMAB
     Dosage: EVERY OTHER MONTH
     Route: 065
     Dates: start: 201801

REACTIONS (1)
  - Multiple sclerosis relapse [Unknown]
